FAERS Safety Report 11282001 (Version 1)
Quarter: 2015Q3

REPORT INFORMATION
  Report Type: Spontaneous
  Country: FR (occurrence: FR)
  Receive Date: 20150718
  Receipt Date: 20150718
  Transmission Date: 20151125
  Serious: Yes (Other)
  Sender: FDA-Public Use
  Company Number: FR-HOSPIRA-2934463

PATIENT
  Age: 49 Year
  Sex: Female

DRUGS (9)
  1. AVASTIN [Concomitant]
     Active Substance: BEVACIZUMAB
     Indication: CHEMOTHERAPY
     Dates: start: 20150121
  2. PACLITAXEL. [Concomitant]
     Active Substance: PACLITAXEL
     Indication: CHEMOTHERAPY
     Dates: start: 20150121
  3. CARBOPLATIN HOSPIRA [Suspect]
     Active Substance: CARBOPLATIN
     Indication: CHEMOTHERAPY
     Dosage: C4D1
     Dates: start: 20150506
  4. AVASTIN [Concomitant]
     Active Substance: BEVACIZUMAB
     Indication: CHEMOTHERAPY
     Dates: start: 20150415
  5. PACLITAXEL. [Concomitant]
     Active Substance: PACLITAXEL
     Indication: CHEMOTHERAPY
     Dates: start: 20150415, end: 20150415
  6. CARBOPLATIN HOSPIRA [Suspect]
     Active Substance: CARBOPLATIN
     Indication: CHEMOTHERAPY
     Dosage: 680 MG/M2
     Route: 042
     Dates: start: 20150415, end: 20150415
  7. TAXOL [Concomitant]
     Active Substance: PACLITAXEL
     Indication: CHEMOTHERAPY
     Dates: start: 20150422
  8. CARBOPLATIN HOSPIRA [Suspect]
     Active Substance: CARBOPLATIN
  9. CARBOPLATIN HOSPIRA [Suspect]
     Active Substance: CARBOPLATIN

REACTIONS (4)
  - Pruritus [Recovered/Resolved]
  - Paraesthesia [Recovered/Resolved]
  - Chest discomfort [Recovered/Resolved]
  - Erythema [Recovered/Resolved]

NARRATIVE: CASE EVENT DATE: 20150415
